FAERS Safety Report 8471507-5 (Version None)
Quarter: 2012Q2

REPORT INFORMATION
  Report Type: 
  Country: None (occurrence: None)
  Receive Date: 20120627
  Receipt Date: 20120624
  Transmission Date: 20120825
  Serious: Yes (Other)
  Sender: FDA-Public Use
  Company Number: PHHY2012MX048252

PATIENT
  Sex: Female

DRUGS (3)
  1. VITAMIN E [Concomitant]
     Dosage: UNK UKN, UNK
  2. ZOLEDRONOC ACID [Suspect]
     Indication: OSTEOPOROSIS
     Dosage: 5MG/100 ML PER YEAR
     Route: 042
     Dates: start: 20120525
  3. VITAMIN B COMPLEX CAP [Concomitant]
     Dosage: UNK UKN, UNK

REACTIONS (5)
  - TYPHOID FEVER [None]
  - PAIN IN EXTREMITY [None]
  - FATIGUE [None]
  - NAUSEA [None]
  - MUSCULOSKELETAL PAIN [None]
